FAERS Safety Report 5252532-4 (Version None)
Quarter: 2007Q1

REPORT INFORMATION
  Report Type: 
  Country: None (occurrence: None)
  Receive Date: 20070301
  Receipt Date: 20070222
  Transmission Date: 20070707
  Serious: Yes (Other)
  Sender: FDA-Public Use
  Company Number: US-JNJFOC-20070205468

PATIENT
  Sex: Female

DRUGS (11)
  1. INFLIXIMAB [Suspect]
     Indication: RHEUMATOID ARTHRITIS
     Route: 042
  2. ASPIRIN [Concomitant]
  3. CELEBREX [Concomitant]
  4. GLIPZIDE [Concomitant]
  5. HYDROCODONE [Concomitant]
  6. MULTI-VITAMIN [Concomitant]
  7. NORTRIPTYLINE HCL [Concomitant]
  8. PREMARIN [Concomitant]
  9. GABAPENTIN [Concomitant]
  10. HUMIRA [Concomitant]
  11. B-12 [Concomitant]
     Route: 050

REACTIONS (1)
  - BASAL CELL CARCINOMA [None]
